FAERS Safety Report 6732241-2 (Version None)
Quarter: 2010Q2

REPORT INFORMATION
  Report Type: 
  Country: None (occurrence: None)
  Receive Date: 20100519
  Receipt Date: 20100513
  Transmission Date: 20101027
  Serious: Yes (Other)
  Sender: FDA-Public Use
  Company Number: A0859583A

PATIENT
  Age: 65 Year
  Sex: Female

DRUGS (6)
  1. ADVAIR DISKUS 100/50 [Suspect]
     Indication: EMPHYSEMA
     Dosage: 1PUFF TWICE PER DAY
     Route: 055
     Dates: start: 20100511, end: 20100511
  2. ALBUTEROL + IPRATROPIUM BROMIDE [Concomitant]
  3. PAXIL [Concomitant]
  4. LISINOPRIL [Concomitant]
  5. METFORMIN HYDROCHLORIDE [Concomitant]
  6. MORPHINE [Concomitant]

REACTIONS (6)
  - COUGH [None]
  - HYPOTENSION [None]
  - NAUSEA [None]
  - SHOCK [None]
  - TREMOR [None]
  - VOMITING [None]
